FAERS Safety Report 24570438 (Version 5)
Quarter: 2025Q1

REPORT INFORMATION
  Report Type: Report from Study
  Country: US (occurrence: US)
  Receive Date: 20241031
  Receipt Date: 20250120
  Transmission Date: 20250409
  Serious: Yes (Hospitalization, Other)
  Sender: JOHNSON AND JOHNSON
  Company Number: US-JNJFOC-20240974845

PATIENT
  Age: 49 Year
  Sex: Female
  Weight: 67.1 kg

DRUGS (28)
  1. MACITENTAN [Suspect]
     Active Substance: MACITENTAN
     Indication: Product used for unknown indication
     Route: 048
  2. MACITENTAN [Suspect]
     Active Substance: MACITENTAN
     Route: 048
     Dates: start: 20240926, end: 20241003
  3. MACITENTAN [Suspect]
     Active Substance: MACITENTAN
     Route: 048
  4. REMODULIN [Suspect]
     Active Substance: TREPROSTINIL
     Indication: Product used for unknown indication
     Route: 058
     Dates: start: 202410, end: 2024
  5. REMODULIN [Suspect]
     Active Substance: TREPROSTINIL
     Route: 058
     Dates: start: 20230602
  6. REMODULIN [Suspect]
     Active Substance: TREPROSTINIL
     Route: 058
     Dates: start: 2024, end: 2024
  7. REMODULIN [Suspect]
     Active Substance: TREPROSTINIL
     Route: 058
     Dates: start: 2024
  8. REMODULIN [Suspect]
     Active Substance: TREPROSTINIL
     Route: 058
  9. LASIX [Concomitant]
     Active Substance: FUROSEMIDE
  10. KETAMINE [Concomitant]
     Active Substance: KETAMINE
  11. SILDENAFIL CITRATE [Concomitant]
     Active Substance: SILDENAFIL CITRATE
  12. POTASSIUM CHLORIDE [Concomitant]
     Active Substance: POTASSIUM CHLORIDE
  13. ALDACTONE [Concomitant]
     Active Substance: SPIRONOLACTONE
  14. SOTATERCEPT [Concomitant]
     Active Substance: SOTATERCEPT
  15. CLONIDINE [Concomitant]
     Active Substance: CLONIDINE
  16. KETOPROFEN [Concomitant]
     Active Substance: KETOPROFEN
  17. ASPIRIN [Concomitant]
     Active Substance: ASPIRIN
  18. OXYGEN [Concomitant]
     Active Substance: OXYGEN
  19. BUSPIRONE [Concomitant]
     Active Substance: BUSPIRONE HYDROCHLORIDE
  20. MAGNESSIUM CARBONATE [Concomitant]
  21. ONDANSETRON [Concomitant]
     Active Substance: ONDANSETRON
  22. AMITRIPTYLINE [Concomitant]
     Active Substance: AMITRIPTYLINE
  23. POLOXAMER [Concomitant]
     Active Substance: POLOXAMER
  24. AMBRISENTAN [Concomitant]
     Active Substance: AMBRISENTAN
  25. LIDOCAINE HYDROCHLORIDE [Concomitant]
     Active Substance: LIDOCAINE HYDROCHLORIDE
  26. LECITHIN [Concomitant]
     Active Substance: LECITHIN
  27. ELIQUIS [Concomitant]
     Active Substance: APIXABAN
  28. PREDNISONE [Concomitant]
     Active Substance: PREDNISONE
     Dates: start: 20240911

REACTIONS (27)
  - Sinusitis [Recovering/Resolving]
  - Upper respiratory tract infection [Not Recovered/Not Resolved]
  - COVID-19 [Recovered/Resolved]
  - Loss of consciousness [Recovered/Resolved]
  - Skin laceration [Recovered/Resolved]
  - Fall [Recovered/Resolved with Sequelae]
  - Cardiac disorder [Not Recovered/Not Resolved]
  - Metabolic function test abnormal [Not Recovered/Not Resolved]
  - Eye infection [Recovered/Resolved]
  - Lower respiratory tract infection [Not Recovered/Not Resolved]
  - Pericardial effusion [Not Recovered/Not Resolved]
  - Headache [Recovering/Resolving]
  - Peripheral swelling [Recovered/Resolved]
  - Ear infection [Recovered/Resolved]
  - Device leakage [Unknown]
  - Device kink [Unknown]
  - Infusion site reaction [Recovering/Resolving]
  - Decreased appetite [Recovering/Resolving]
  - Haemoglobin decreased [Recovering/Resolving]
  - Erythema [Unknown]
  - Pain in extremity [Recovering/Resolving]
  - Catheter site pruritus [Recovered/Resolved]
  - Depression [Recovered/Resolved]
  - Immune system disorder [Not Recovered/Not Resolved]
  - Anxiety [Not Recovered/Not Resolved]
  - Dizziness [Recovering/Resolving]
  - Dyspnoea exertional [Recovering/Resolving]

NARRATIVE: CASE EVENT DATE: 20240101
